FAERS Safety Report 20848845 (Version 1)
Quarter: 2022Q2

REPORT INFORMATION
  Report Type: Spontaneous
  Country: FR (occurrence: FR)
  Receive Date: 20220519
  Receipt Date: 20220519
  Transmission Date: 20220720
  Serious: Yes (Other)
  Sender: FDA-Public Use
  Company Number: None

PATIENT
  Age: 73 Year
  Sex: Female

DRUGS (4)
  1. ALPRAZOLAM [Suspect]
     Active Substance: ALPRAZOLAM
     Indication: Product used for unknown indication
     Dosage: UNK (UP TO 6 CPS/D)
     Route: 048
  2. LAMALINE (ACETAMINOPHEN\CAFFEINE\OPIUM) [Suspect]
     Active Substance: ACETAMINOPHEN\CAFFEINE\OPIUM
     Indication: Product used for unknown indication
     Dosage: UNK (UP TO 6 TO 8 CPS/D)
     Route: 048
  3. ACETAMINOPHEN\CAFFEINE\OPIUM [Suspect]
     Active Substance: ACETAMINOPHEN\CAFFEINE\OPIUM
     Indication: Product used for unknown indication
     Dosage: UNK
     Route: 054
  4. TRIMEPRAZINE [Suspect]
     Active Substance: TRIMEPRAZINE
     Indication: Product used for unknown indication
     Dosage: UNK (UP TO 15 CPS/D)
     Route: 048

REACTIONS (1)
  - Drug use disorder [Not Recovered/Not Resolved]
